FAERS Safety Report 8427402-0 (Version None)
Quarter: 2012Q2

REPORT INFORMATION
  Report Type: 
  Country: None (occurrence: None)
  Receive Date: 20120611
  Receipt Date: 20120604
  Transmission Date: 20120825
  Serious: Yes (Hospitalization, Other)
  Sender: FDA-Public Use
  Company Number: US-MERCK-1201USA02557

PATIENT
  Sex: Female

DRUGS (4)
  1. FOSAMAX [Suspect]
     Route: 048
     Dates: start: 20021201, end: 20070501
  2. FOSAMAX [Suspect]
     Indication: OSTEOPENIA
     Route: 048
     Dates: start: 19960401, end: 20021101
  3. VITAMINS (UNSPECIFIED) [Concomitant]
     Route: 065
     Dates: start: 19960101
  4. PROMETHAZINE [Concomitant]
     Route: 065
     Dates: start: 20030101, end: 20100101

REACTIONS (12)
  - FEMUR FRACTURE [None]
  - ADVERSE EVENT [None]
  - VITAMIN D DEFICIENCY [None]
  - VOMITING [None]
  - NAUSEA [None]
  - HYPOTHYROIDISM [None]
  - LOW TURNOVER OSTEOPATHY [None]
  - HYPERTENSION [None]
  - ARTHRALGIA [None]
  - ARTHROPATHY [None]
  - ARTHRITIS [None]
  - FRACTURE DELAYED UNION [None]
